FAERS Safety Report 6403761-5 (Version None)
Quarter: 2009Q4

REPORT INFORMATION
  Report Type: 
  Country: None (occurrence: None)
  Receive Date: 20091015
  Receipt Date: 20091015
  Transmission Date: 20100525
  Serious: Yes (Hospitalization)
  Sender: FDA-Public Use
  Company Number: None

PATIENT
  Age: 71 Year
  Sex: Female
  Weight: 73 kg

DRUGS (14)
  1. EPOPROSTENOL SODIUM [Suspect]
     Indication: PULMONARY HYPERTENSION
     Dosage: 8.19MG DAILY IV
     Route: 042
     Dates: start: 20091002, end: 20091005
  2. PAROXETINE HCL [Concomitant]
  3. ONDANSETRON [Concomitant]
  4. LEVOTHYROXINE SODIUM [Concomitant]
  5. TUMS [Concomitant]
  6. ACETAMINOPHEN [Concomitant]
  7. IRON SUCROSE INJ [Concomitant]
  8. MORPHINE SULFATE [Concomitant]
  9. INSULIN [Concomitant]
  10. HYDROCODONE [Concomitant]
  11. MULTI-VITAMIN [Concomitant]
  12. INSULIN GLARGINE [Concomitant]
  13. FUROSEMIDE [Concomitant]
  14. SPIRONOLACTONE [Concomitant]

REACTIONS (4)
  - HEADACHE [None]
  - NAUSEA [None]
  - PRODUCT SUBSTITUTION ISSUE [None]
  - VOMITING [None]
